FAERS Safety Report 5626206-1 (Version None)
Quarter: 2008Q1

REPORT INFORMATION
  Report Type: 
  Country: None (occurrence: None)
  Receive Date: 20080214
  Receipt Date: 20080211
  Transmission Date: 20080703
  Serious: Yes (Other)
  Sender: FDA-Public Use
  Company Number: A0708748A

PATIENT
  Age: 32 Year
  Sex: Female

DRUGS (2)
  1. AVANDIA [Suspect]
     Dosage: 8MG PER DAY
     Route: 048
     Dates: start: 20061001, end: 20070301
  2. METFORMIN HCL [Concomitant]

REACTIONS (1)
  - ABORTION SPONTANEOUS [None]
